FAERS Safety Report 9546291 (Version 1)
Quarter: 2013Q3

REPORT INFORMATION
  Report Type: Spontaneous
  Country: US (occurrence: US)
  Receive Date: 20130923
  Receipt Date: 20130923
  Transmission Date: 20140515
  Serious: No
  Sender: FDA-Public Use
  Company Number: US-GLAXOSMITHKLINE-A1024841A

PATIENT
  Age: 35 Year
  Sex: Female

DRUGS (1)
  1. ABREVA [Suspect]
     Indication: ORAL HERPES
     Dates: start: 20130519, end: 20130527

REACTIONS (16)
  - Application site reaction [Recovering/Resolving]
  - Application site irritation [Recovering/Resolving]
  - Oral herpes [Recovering/Resolving]
  - Condition aggravated [Recovering/Resolving]
  - Application site swelling [Recovering/Resolving]
  - Aphthous stomatitis [Recovering/Resolving]
  - Aphthous stomatitis [Recovering/Resolving]
  - Application site dryness [Recovering/Resolving]
  - Stomatitis [Recovering/Resolving]
  - Oral pain [Recovering/Resolving]
  - Dry mouth [Recovering/Resolving]
  - Cheilitis [Recovering/Resolving]
  - Lip swelling [Recovering/Resolving]
  - Lip dry [Recovering/Resolving]
  - Drug administration error [Unknown]
  - Lip blister [Unknown]
